FAERS Safety Report 5121517-0 (Version None)
Quarter: 2006Q4

REPORT INFORMATION
  Report Type: 
  Country: None (occurrence: None)
  Receive Date: 20061006
  Receipt Date: 20060904
  Transmission Date: 20070319
  Serious: Yes (Hospitalization, Other)
  Sender: FDA-Public Use
  Company Number: AU-BRISTOL-MYERS SQUIBB COMPANY-13508437

PATIENT
  Age: 80 Year
  Sex: Female

DRUGS (11)
  1. METFORMIN HCL [Suspect]
     Indication: BLOOD GLUCOSE INCREASED
     Route: 048
     Dates: start: 19990101, end: 20060228
  2. BLINDED: PLACEBO [Suspect]
     Dosage: PLACEBO ( DOUBLEBLIND)
     Route: 048
     Dates: start: 20041207, end: 20050524
  3. BLINDED: DONEPEZIL [Suspect]
     Indication: VASCULAR DEMENTIA
     Dosage: (5MG,1 IN 2)
     Route: 048
     Dates: start: 20041207, end: 20050425
  4. ATORVASTATIN CALCIUM [Suspect]
     Indication: BLOOD CHOLESTEROL INCREASED
     Route: 048
     Dates: start: 20040801, end: 20060228
  5. AMILORIDE [Concomitant]
     Indication: HYPERTENSION
     Dosage: 50/5 MG
     Dates: start: 19940101, end: 20051020
  6. ASPIRIN [Concomitant]
     Indication: THROMBOSIS PROPHYLAXIS
     Route: 048
     Dates: start: 20000101
  7. PRAZOSIN HCL [Concomitant]
     Indication: HYPERTENSION
     Route: 048
     Dates: start: 19940101, end: 20060228
  8. GLICLAZIDE [Concomitant]
     Indication: BLOOD GLUCOSE INCREASED
     Route: 048
     Dates: start: 20040101
  9. RABEPRAZOLE SODIUM [Concomitant]
     Indication: REFLUX OESOPHAGITIS
     Route: 048
     Dates: start: 20050802
  10. TIMOLOL MALEATE (GEN) [Concomitant]
     Indication: GLAUCOMA
     Dosage: 1 GTT (GTT,1 IN 1 D )
     Route: 031
     Dates: start: 20010101
  11. LATANOPROST [Concomitant]
     Indication: GLAUCOMA
     Dosage: 1 GTT (1 GTT, 1 IN 1 D)
     Route: 031
     Dates: start: 20010101

REACTIONS (3)
  - CONSTIPATION [None]
  - DYSTONIA [None]
  - WEIGHT DECREASED [None]
